FAERS Safety Report 4627394-6 (Version None)
Quarter: 2005Q2

REPORT INFORMATION
  Report Type: 
  Country: None (occurrence: None)
  Receive Date: 20050405
  Receipt Date: 20050324
  Transmission Date: 20051028
  Serious: Yes (Other)
  Sender: FDA-Public Use
  Company Number: 2005049222

PATIENT
  Age: 62 Year
  Sex: Female

DRUGS (7)
  1. CELEBREX [Suspect]
     Indication: ARTHRITIS
     Dosage: 400 MG (200 MG, 2 IN 1 D), ORAL
     Route: 048
     Dates: end: 20050207
  2. QUETIAPINE FUMARATE (QUETIAPINE FUMARATE) [Concomitant]
  3. PIOGLITAOZNE (PIOGLITAZONE) [Concomitant]
  4. LISINOPRIL [Concomitant]
  5. GLIBENCAMIDE (GLEBENCLAMIDE) [Concomitant]
  6. LOVASTTIN (LOVASTATIN) [Concomitant]
  7. METOPROLOL SUCCINATE [Concomitant]

REACTIONS (4)
  - COLITIS [None]
  - FEELING ABNORMAL [None]
  - INTESTINAL HAEMORRHAGE [None]
  - WEIGHT DECREASED [None]
